FAERS Safety Report 22232380 (Version 1)
Quarter: 2023Q2

REPORT INFORMATION
  Report Type: Spontaneous
  Country: HU (occurrence: HU)
  Receive Date: 20230420
  Receipt Date: 20230420
  Transmission Date: 20230722
  Serious: Yes (Other)
  Sender: FDA-Public Use
  Company Number: None

PATIENT
  Age: 55 Year
  Sex: Male
  Weight: 72 kg

DRUGS (1)
  1. TAMSULOSIN HYDROCHLORIDE [Suspect]
     Active Substance: TAMSULOSIN HYDROCHLORIDE
     Indication: Benign prostatic hyperplasia
     Dosage: TAMSUDIL 0.4 MG MODIFIED ACTIVE SUBSTANCE HARD CAPSULE
     Route: 065
     Dates: start: 20230314, end: 20230314

REACTIONS (5)
  - Asthenia [Recovered/Resolved]
  - Prostate tenderness [Recovered/Resolved]
  - Dizziness postural [Recovered/Resolved]
  - Ejaculation failure [Recovering/Resolving]
  - Constipation [Recovered/Resolved]

NARRATIVE: CASE EVENT DATE: 20230314
